FAERS Safety Report 7754021-1 (Version None)
Quarter: 2011Q3

REPORT INFORMATION
  Report Type: 
  Country: None (occurrence: None)
  Receive Date: 20110915
  Receipt Date: 20110906
  Transmission Date: 20111222
  Serious: Yes (Hospitalization)
  Sender: FDA-Public Use
  Company Number: PHHY2011FR80258

PATIENT
  Sex: Male

DRUGS (5)
  1. AIROMIR [Concomitant]
     Indication: DYSPNOEA
     Dosage: UNK
  2. ONBREZ [Suspect]
     Indication: CHRONIC OBSTRUCTIVE PULMONARY DISEASE
     Dosage: UNK UKN, QD
     Dates: start: 20110709, end: 20110719
  3. PREDNISOLONE [Concomitant]
     Indication: DYSPNOEA
     Dosage: 60 MG, UNK
  4. CORTICOSTEROIDS [Concomitant]
     Indication: DYSPNOEA
     Dosage: 0.5 MG/KG/+DAY
     Route: 048
  5. LEXOMIL [Concomitant]
     Dosage: 0.5 TABLET IN THE EVENING
     Dates: start: 20110610

REACTIONS (15)
  - PULMONARY HYPERTENSION [None]
  - CARDIAC FAILURE [None]
  - ORTHOPNOEA [None]
  - MITRAL VALVE INCOMPETENCE [None]
  - PULMONARY OEDEMA [None]
  - AORTIC VALVE INCOMPETENCE [None]
  - TREATMENT NONCOMPLIANCE [None]
  - DILATATION VENTRICULAR [None]
  - BRAIN NATRIURETIC PEPTIDE INCREASED [None]
  - HYPOTENSION [None]
  - OVERDOSE [None]
  - DYSPNOEA [None]
  - TACHYCARDIA [None]
  - OEDEMA PERIPHERAL [None]
  - EJECTION FRACTION DECREASED [None]
